FAERS Safety Report 23613164 (Version 1)
Quarter: 2024Q1

REPORT INFORMATION
  Report Type: Spontaneous
  Country: US (occurrence: US)
  Receive Date: 20240308
  Receipt Date: 20240308
  Transmission Date: 20240409
  Serious: Yes (Other)
  Sender: FDA-Public Use
  Company Number: US-ALCON LABORATORIES-ALC2024US001339

PATIENT
  Sex: Female

DRUGS (1)
  1. INVELTYS [Suspect]
     Active Substance: LOTEPREDNOL ETABONATE
     Indication: Postoperative care
     Dosage: UNK
     Route: 047

REACTIONS (3)
  - Punctate keratitis [Recovering/Resolving]
  - Keratitis [Recovering/Resolving]
  - Condition aggravated [Recovering/Resolving]
